FAERS Safety Report 24121071 (Version 5)
Quarter: 2025Q3

REPORT INFORMATION
  Report Type: Spontaneous
  Country: EU (occurrence: EU)
  Receive Date: 20240722
  Receipt Date: 20250721
  Transmission Date: 20251020
  Serious: Yes (Hospitalization, Other)
  Sender: MYLAN
  Company Number: EU-GLAXOSMITHKLINE-HU2023EME178332

PATIENT
  Age: 34 Year
  Sex: Female

DRUGS (32)
  1. VENLAFAXINE [Suspect]
     Active Substance: VENLAFAXINE HYDROCHLORIDE
     Indication: Bipolar disorder
  2. VENLAFAXINE [Suspect]
     Active Substance: VENLAFAXINE HYDROCHLORIDE
     Route: 065
  3. VENLAFAXINE [Suspect]
     Active Substance: VENLAFAXINE HYDROCHLORIDE
     Route: 065
  4. VENLAFAXINE [Suspect]
     Active Substance: VENLAFAXINE HYDROCHLORIDE
  5. LAMOTRIGINE [Suspect]
     Active Substance: LAMOTRIGINE
     Indication: Bipolar disorder
  6. LAMOTRIGINE [Suspect]
     Active Substance: LAMOTRIGINE
     Route: 065
  7. LAMOTRIGINE [Suspect]
     Active Substance: LAMOTRIGINE
     Route: 065
  8. LAMOTRIGINE [Suspect]
     Active Substance: LAMOTRIGINE
  9. VENLAFAXINE [Suspect]
     Active Substance: VENLAFAXINE HYDROCHLORIDE
     Indication: Bipolar disorder
     Dates: start: 20230610, end: 20230617
  10. VENLAFAXINE [Suspect]
     Active Substance: VENLAFAXINE HYDROCHLORIDE
     Route: 065
     Dates: start: 20230610, end: 20230617
  11. VENLAFAXINE [Suspect]
     Active Substance: VENLAFAXINE HYDROCHLORIDE
     Route: 065
     Dates: start: 20230610, end: 20230617
  12. VENLAFAXINE [Suspect]
     Active Substance: VENLAFAXINE HYDROCHLORIDE
     Dates: start: 20230610, end: 20230617
  13. VORTIOXETINE [Suspect]
     Active Substance: VORTIOXETINE
     Indication: Bipolar disorder
  14. VORTIOXETINE [Suspect]
     Active Substance: VORTIOXETINE
     Route: 065
  15. VORTIOXETINE [Suspect]
     Active Substance: VORTIOXETINE
     Route: 065
  16. VORTIOXETINE [Suspect]
     Active Substance: VORTIOXETINE
  17. ALPRAZOLAM [Concomitant]
     Active Substance: ALPRAZOLAM
     Indication: Product used for unknown indication
  18. ALPRAZOLAM [Concomitant]
     Active Substance: ALPRAZOLAM
     Route: 065
  19. ALPRAZOLAM [Concomitant]
     Active Substance: ALPRAZOLAM
     Route: 065
  20. ALPRAZOLAM [Concomitant]
     Active Substance: ALPRAZOLAM
  21. LIRAGLUTIDE [Concomitant]
     Active Substance: LIRAGLUTIDE
     Indication: Obesity
  22. LIRAGLUTIDE [Concomitant]
     Active Substance: LIRAGLUTIDE
     Route: 065
  23. LIRAGLUTIDE [Concomitant]
     Active Substance: LIRAGLUTIDE
     Route: 065
  24. LIRAGLUTIDE [Concomitant]
     Active Substance: LIRAGLUTIDE
  25. CINOLAZEPAM [Concomitant]
     Active Substance: CINOLAZEPAM
     Indication: Product used for unknown indication
  26. CINOLAZEPAM [Concomitant]
     Active Substance: CINOLAZEPAM
     Route: 065
  27. CINOLAZEPAM [Concomitant]
     Active Substance: CINOLAZEPAM
     Route: 065
  28. CINOLAZEPAM [Concomitant]
     Active Substance: CINOLAZEPAM
  29. DIOSMIN\HESPERIDIN [Concomitant]
     Active Substance: DIOSMIN\HESPERIDIN
     Indication: Product used for unknown indication
  30. DIOSMIN\HESPERIDIN [Concomitant]
     Active Substance: DIOSMIN\HESPERIDIN
     Route: 065
  31. DIOSMIN\HESPERIDIN [Concomitant]
     Active Substance: DIOSMIN\HESPERIDIN
     Route: 065
  32. DIOSMIN\HESPERIDIN [Concomitant]
     Active Substance: DIOSMIN\HESPERIDIN

REACTIONS (12)
  - Lichen planus [Recovering/Resolving]
  - Skin erosion [Recovering/Resolving]
  - Lip erosion [Unknown]
  - Skin plaque [Recovering/Resolving]
  - Dysphagia [Recovering/Resolving]
  - Blister [Recovering/Resolving]
  - Nikolsky^s sign positive [Recovering/Resolving]
  - Pyrexia [Unknown]
  - Toxic epidermal necrolysis [Recovered/Resolved]
  - Rash pruritic [Recovering/Resolving]
  - Rash papular [Recovering/Resolving]
  - Condition aggravated [Unknown]
